FAERS Safety Report 21175050 (Version 1)
Quarter: 2022Q3

REPORT INFORMATION
  Report Type: Spontaneous
  Country: US (occurrence: US)
  Receive Date: 20220805
  Receipt Date: 20220805
  Transmission Date: 20221027
  Serious: No
  Sender: FDA-Public Use
  Company Number: US-JNJFOC-20220762108

PATIENT

DRUGS (1)
  1. DARZALEX FASPRO [Suspect]
     Active Substance: DARATUMUMAB\HYALURONIDASE-FIHJ
     Indication: Product used for unknown indication
     Route: 058

REACTIONS (8)
  - Dizziness [Unknown]
  - Diarrhoea [Unknown]
  - Chest discomfort [Unknown]
  - Dyspnoea [Unknown]
  - Flushing [Unknown]
  - Vomiting [Unknown]
  - Limb discomfort [Unknown]
  - Chills [Unknown]
